FAERS Safety Report 5289146-6 (Version None)
Quarter: 2007Q1

REPORT INFORMATION
  Report Type: 
  Country: None (occurrence: None)
  Receive Date: 20070116
  Receipt Date: 20060124
  Transmission Date: 20070707
  Serious: Yes (Hospitalization)
  Sender: FDA-Public Use
  Company Number: FEI2006-0119

PATIENT
  Age: 39 Year
  Sex: Female
  Weight: 63.5036 kg

DRUGS (11)
  1. INTRAUTERINE COPPER CONTRACEPTIVE [Suspect]
     Indication: CONTRACEPTION
     Dosage: INTRA-UTERINE
     Route: 015
     Dates: start: 20021001, end: 20051027
  2. DUET DHA (PRENATAL VITAMINS /01549301/) (UNKNOWN) [Concomitant]
  3. MARCAINE (BUPIVACAINE) (UNKNOWN) [Concomitant]
  4. PITOCIN (OXYTOCIN CITRATE) (UNKNOWN) [Concomitant]
  5. MORPHINE [Concomitant]
  6. FENTANYL [Concomitant]
  7. FLEXERIL [Concomitant]
  8. ALEVE [Concomitant]
  9. IRON SULFATE (FERROUS SULFATE) (UNKNOWN) [Concomitant]
  10. PERCOCET (OXYCOCET) (UNKNOWN) [Concomitant]
  11. MOTRIN [Concomitant]

REACTIONS (13)
  - ANAEMIA [None]
  - BACK INJURY [None]
  - IUCD COMPLICATION [None]
  - IUD MIGRATION [None]
  - LYMPHOCYTE COUNT DECREASED [None]
  - LYMPHOCYTE PERCENTAGE DECREASED [None]
  - NEUTROPHIL COUNT [None]
  - NEUTROPHIL PERCENTAGE INCREASED [None]
  - OVARIAN CYST [None]
  - SCIATICA [None]
  - UNINTENDED PREGNANCY [None]
  - UTERINE PERFORATION [None]
  - WHITE BLOOD CELL COUNT INCREASED [None]
